FAERS Safety Report 7017694-7 (Version None)
Quarter: 2010Q3

REPORT INFORMATION
  Report Type: 
  Country: None (occurrence: None)
  Receive Date: 20100928
  Receipt Date: 20100914
  Transmission Date: 20110219
  Serious: Yes (Hospitalization)
  Sender: FDA-Public Use
  Company Number: US-RANBAXY-2010RR-38324

PATIENT
  Age: 48 Year
  Sex: Male

DRUGS (3)
  1. CIPROFLOXACIN [Suspect]
     Indication: INFLUENZA LIKE ILLNESS
     Route: 042
  2. LEVAQUIN [Suspect]
     Indication: SEPSIS
     Dosage: UNK
     Route: 048
     Dates: start: 20070501
  3. LEVAQUIN [Suspect]
     Indication: INFLUENZA LIKE ILLNESS

REACTIONS (2)
  - MUSCLE ATROPHY [None]
  - TENDON RUPTURE [None]
